FAERS Safety Report 5688859-1 (Version None)
Quarter: 2008Q1

REPORT INFORMATION
  Report Type: 
  Country: None (occurrence: None)
  Receive Date: 20080331
  Receipt Date: 20050509
  Transmission Date: 20080703
  Serious: Yes (Death)
  Sender: FDA-Public Use
  Company Number: FR-ROCHE-404075

PATIENT
  Age: 28 Year
  Sex: Male

DRUGS (10)
  1. RIVOTRIL [Suspect]
     Indication: WITHDRAWAL SYNDROME
     Route: 048
     Dates: start: 20050210
  2. ZYPREXA [Suspect]
     Indication: WITHDRAWAL SYNDROME
     Route: 048
     Dates: start: 20050211
  3. METHADONE HYDROCHLORIDE [Suspect]
     Indication: WITHDRAWAL SYNDROME
     Route: 048
     Dates: start: 20050209
  4. METHADONE HYDROCHLORIDE [Suspect]
     Route: 048
     Dates: start: 20050210
  5. METHADONE HYDROCHLORIDE [Suspect]
     Route: 048
     Dates: start: 20050211
  6. METHADONE HYDROCHLORIDE [Suspect]
     Route: 048
     Dates: start: 20050212
  7. SUBUTEX [Concomitant]
  8. VALIUM [Concomitant]
  9. SOLIAN [Concomitant]
     Dates: start: 20050209, end: 20050209
  10. SOLIAN [Concomitant]
     Dates: start: 20050210, end: 20050211

REACTIONS (1)
  - DEATH [None]
